FAERS Safety Report 14270110 (Version 1)
Quarter: 2017Q4

REPORT INFORMATION
  Report Type: Spontaneous
  Country: FR (occurrence: FR)
  Receive Date: 20171211
  Receipt Date: 20171211
  Transmission Date: 20180321
  Serious: Yes (Hospitalization, Other)
  Sender: FDA-Public Use
  Company Number: FR-OTSUKA-DJ201401837

PATIENT

DRUGS (11)
  1. LOXAPAC [Suspect]
     Active Substance: LOXAPINE SUCCINATE
     Route: 048
     Dates: start: 200902, end: 201212
  2. DEROXAT [Concomitant]
     Active Substance: PAROXETINE HYDROCHLORIDE
     Indication: SUICIDAL IDEATION
     Route: 065
     Dates: start: 2008
  3. RISPERIDONE. [Suspect]
     Active Substance: RISPERIDONE
     Dosage: 2009-JAN10
     Dates: start: 2009, end: 201010
  4. CANNABIS [Concomitant]
     Active Substance: CANNABIS SATIVA SUBSP. INDICA TOP
     Route: 065
     Dates: end: 201212
  5. PAROXETINE. [Concomitant]
     Active Substance: PAROXETINE
     Indication: SOCIAL AVOIDANT BEHAVIOUR
  6. ABILIFY [Suspect]
     Active Substance: ARIPIPRAZOLE
     Route: 048
     Dates: start: 201001, end: 201401
  7. RISPERDAL [Suspect]
     Active Substance: RISPERIDONE
     Route: 065
     Dates: start: 2009, end: 201010
  8. PAROXETINE. [Concomitant]
     Active Substance: PAROXETINE
     Indication: DEPRESSION
     Dosage: SEP-2008, DOSE INCREASED TO 40MG DAILY
     Dates: start: 2008
  9. PAROXETINE. [Concomitant]
     Active Substance: PAROXETINE
     Indication: SUICIDAL IDEATION
  10. SERESTA [Concomitant]
     Active Substance: OXAZEPAM
     Route: 065
  11. CANNABIS [Concomitant]
     Active Substance: CANNABIS SATIVA SUBSP. INDICA TOP
     Dosage: UNK
     Dates: end: 201212

REACTIONS (1)
  - Impulse-control disorder [Recovered/Resolved]

NARRATIVE: CASE EVENT DATE: 200902
